FAERS Safety Report 21267924 (Version 2)
Quarter: 2022Q3

REPORT INFORMATION
  Report Type: Report from Study
  Country: US (occurrence: US)
  Receive Date: 20220829
  Receipt Date: 20220921
  Transmission Date: 20221026
  Serious: Yes (Other)
  Sender: FDA-Public Use
  Company Number: US-GW PHARMA-2022-US-028070

PATIENT
  Sex: Female

DRUGS (7)
  1. EPIDIOLEX [Suspect]
     Active Substance: CANNABIDIOL
     Indication: Severe myoclonic epilepsy of infancy
     Dosage: 0.35 MILLILITER, BID
     Route: 048
     Dates: start: 20220628
  2. CLOBAZAM [Concomitant]
     Active Substance: CLOBAZAM
     Dosage: UNK
     Dates: start: 20220814
  3. TOPIRAMATE [Concomitant]
     Active Substance: TOPIRAMATE
     Dosage: 20MG/ML
  4. TOPIRAMATE [Concomitant]
     Active Substance: TOPIRAMATE
     Dosage: 100MG TABLET
     Dates: start: 20211230
  5. DIACOMIT [Concomitant]
     Active Substance: STIRIPENTOL
     Dosage: UNK
     Dates: start: 20220729
  6. MIDAZOLAM [Concomitant]
     Active Substance: MIDAZOLAM
     Dosage: UNK
     Dates: start: 20220527
  7. MOMETASONE [Concomitant]
     Active Substance: MOMETASONE
     Dosage: UNK
     Dates: start: 20220421

REACTIONS (5)
  - Seizure [Unknown]
  - Crying [Unknown]
  - Affect lability [Unknown]
  - Myoclonus [Unknown]
  - Product administration interrupted [Unknown]
